FAERS Safety Report 6604662-X (Version None)
Quarter: 2010Q1

REPORT INFORMATION
  Report Type: 
  Country: None (occurrence: None)
  Receive Date: 20100226
  Receipt Date: 20100222
  Transmission Date: 20100710
  Serious: Yes (Other)
  Sender: FDA-Public Use
  Company Number: NL-ROCHE-679002

PATIENT
  Weight: 74 kg

DRUGS (3)
  1. CAPECITABINE [Suspect]
     Indication: GASTRIC CANCER
     Dosage: WITH A MEAL OR SNACK FROM DAY 1-14 EVERY 3 WEEKS (ROUTE, FORM AND DOSING REGIMEN PER PROTOCOL)
     Route: 048
     Dates: start: 20090911, end: 20091023
  2. EPIRUBICIN [Suspect]
     Indication: GASTRIC CANCER
     Dosage: ON DAY 1 AS AN INTRAVENOUS PUSH EVERY 3 WEEKS IMMEDIATE PRIOR TO THE CISPLATIN. (PER PROTOCOL)
     Route: 042
     Dates: start: 20090911, end: 20091023
  3. CISPLATIN [Suspect]
     Indication: GASTRIC CANCER
     Dosage: ON DAY 1 INTRAVENOUSLY EVERY 3 WEEKS WITH HYDRATION (PER PROTOCOL)
     Route: 042
     Dates: start: 20090911, end: 20091023

REACTIONS (1)
  - GASTROINTESTINAL ANASTOMOTIC LEAK [None]
